FAERS Safety Report 7994927-1 (Version None)
Quarter: 2011Q4

REPORT INFORMATION
  Report Type: 
  Country: None (occurrence: None)
  Receive Date: 20111220
  Receipt Date: 20111216
  Transmission Date: 20120403
  Serious: Yes (Death, Hospitalization)
  Sender: FDA-Public Use
  Company Number: ES-SANOFI-AVENTIS-2011SA074294

PATIENT
  Age: 57 Year
  Sex: Female
  Weight: 57 kg

DRUGS (7)
  1. DOCETAXEL [Suspect]
     Indication: LUNG NEOPLASM MALIGNANT
     Dosage: LAST DOSE PRIOR TO SAE: 24OCT 2011
     Route: 042
     Dates: start: 20111013, end: 20111027
  2. ERLOTINIB HYDROCHLORIDE [Suspect]
     Indication: LUNG NEOPLASM MALIGNANT
     Dosage: LAST DOSE PRIOR TO SAE: 7 OCT 2011
     Route: 048
     Dates: start: 20111006, end: 20111103
  3. TORECAN [Concomitant]
  4. OXYCODONE HYDROCHLORIDE [Concomitant]
  5. PRIMPERAN TAB [Concomitant]
  6. PEMETREXED [Suspect]
     Indication: LUNG NEOPLASM MALIGNANT
     Dosage: LAST DOSE PRIOR TO SAE: 16 SEP  2011
     Route: 042
     Dates: start: 20110801, end: 20111103
  7. SIMVASTATIN [Concomitant]

REACTIONS (3)
  - NAUSEA [None]
  - VOMITING [None]
  - PNEUMONIA [None]
